FAERS Safety Report 14647222 (Version 1)
Quarter: 2018Q1

REPORT INFORMATION
  Report Type: Spontaneous
  Country: US (occurrence: US)
  Receive Date: 20180316
  Receipt Date: 20180316
  Transmission Date: 20180509
  Serious: No
  Sender: FDA-Public Use
  Company Number: US-AMGEN-USASP2018035874

PATIENT
  Sex: Female

DRUGS (1)
  1. ENBREL [Suspect]
     Active Substance: ETANERCEPT
     Indication: PSORIATIC ARTHROPATHY
     Dosage: UNK
     Route: 065
     Dates: start: 201709

REACTIONS (6)
  - Product storage error [Unknown]
  - Ligament rupture [Unknown]
  - Fall [Unknown]
  - Nerve injury [Unknown]
  - Avulsion fracture [Unknown]
  - Tendon injury [Unknown]
